FAERS Safety Report 8269582-6 (Version None)
Quarter: 2012Q2

REPORT INFORMATION
  Report Type: 
  Country: None (occurrence: None)
  Receive Date: 20120410
  Receipt Date: 20120402
  Transmission Date: 20120825
  Serious: Yes (Hospitalization, Other)
  Sender: FDA-Public Use
  Company Number: SE-BRISTOL-MYERS SQUIBB COMPANY-16250359

PATIENT
  Age: 55 Year
  Sex: Male

DRUGS (5)
  1. PLENDIL [Concomitant]
  2. HYDREA [Suspect]
     Indication: THROMBOCYTOSIS
     Route: 048
     Dates: start: 20110406, end: 20110501
  3. FLUOXETINE [Concomitant]
     Dosage: 1DF=40MG+20MG
  4. ASPIRIN [Concomitant]
  5. SIMVASTATIN [Concomitant]

REACTIONS (3)
  - PYREXIA [None]
  - MYOCARDITIS [None]
  - MALAISE [None]
